FAERS Safety Report 6904053-8 (Version None)
Quarter: 2010Q3

REPORT INFORMATION
  Report Type: 
  Country: None (occurrence: None)
  Receive Date: 20100804
  Receipt Date: 20090305
  Transmission Date: 20110219
  Serious: No
  Sender: FDA-Public Use
  Company Number: US-PFIZER INC-2008159631

PATIENT
  Sex: Male

DRUGS (2)
  1. LYRICA [Suspect]
     Indication: CRUSH INJURY
     Dosage: 300 MG, 3X/DAY
  2. GABAPENTIN [Suspect]

REACTIONS (1)
  - FALL [None]
